FAERS Safety Report 6679792-7 (Version None)
Quarter: 2010Q2

REPORT INFORMATION
  Report Type: 
  Country: None (occurrence: None)
  Receive Date: 20100413
  Receipt Date: 20091023
  Transmission Date: 20101027
  Serious: No
  Sender: FDA-Public Use
  Company Number: US-ASTRAZENECA-2009SE22418

PATIENT
  Age: 840 Month
  Sex: Female

DRUGS (5)
  1. TENORMIN [Suspect]
     Route: 048
     Dates: start: 20070101
  2. LISINOPRIL [Suspect]
     Indication: HYPERTENSION
     Dates: start: 20090301, end: 20090501
  3. HYDROCHLOROTHIAZIDE [Suspect]
     Indication: HYPERTENSION
     Dates: end: 20071201
  4. HYDROCHLOROTHIAZIDE [Suspect]
     Indication: HYPERTENSION
  5. ACCUPRO [Suspect]

REACTIONS (5)
  - BURNING SENSATION [None]
  - COUGH [None]
  - HEART RATE DECREASED [None]
  - PAIN [None]
  - PAIN IN EXTREMITY [None]
